FAERS Safety Report 11389727 (Version 4)
Quarter: 2015Q3

REPORT INFORMATION
  Report Type: Report from Study
  Country: NL (occurrence: NL)
  Receive Date: 20150817
  Receipt Date: 20150922
  Transmission Date: 20151125
  Serious: Yes (Hospitalization)
  Sender: FDA-Public Use
  Company Number: NL-ABBVIE-15P-114-1412769-00

PATIENT
  Age: 70 Year
  Sex: Female

DRUGS (5)
  1. SINEMET [Concomitant]
     Active Substance: CARBIDOPA\LEVODOPA
     Indication: PRODUCT USED FOR UNKNOWN INDICATION
  2. DUODOPA [Suspect]
     Active Substance: CARBIDOPA\LEVODOPA
     Indication: PARKINSON^S DISEASE
     Dosage: 20/5MG/ML CONTINUOUS
     Route: 050
     Dates: start: 20120530
  3. MADOPAR [Concomitant]
     Active Substance: BENSERAZIDE HYDROCHLORIDE\LEVODOPA
     Indication: PRODUCT USED FOR UNKNOWN INDICATION
  4. DUODOPA [Suspect]
     Active Substance: CARBIDOPA\LEVODOPA
     Dosage: MD: 4.0 CD: 2.3 ED: 2.3 ND: 2.0
     Route: 050
  5. DUODOPA [Suspect]
     Active Substance: CARBIDOPA\LEVODOPA
     Dosage: MD: 4.0 CD: 2.2 ED: 2.3 ND: 2.3
     Route: 050

REACTIONS (19)
  - Musculoskeletal stiffness [Recovering/Resolving]
  - Tremor [Recovering/Resolving]
  - Hypoaesthesia [Not Recovered/Not Resolved]
  - Musculoskeletal pain [Not Recovered/Not Resolved]
  - Device dislocation [Unknown]
  - Therapeutic response decreased [Unknown]
  - On and off phenomenon [Recovering/Resolving]
  - Device issue [Unknown]
  - Muscle spasms [Recovering/Resolving]
  - Drug ineffective [Recovering/Resolving]
  - Activities of daily living impaired [Unknown]
  - Hypoaesthesia [Recovering/Resolving]
  - Hyperkinesia [Recovering/Resolving]
  - Pain in extremity [Recovering/Resolving]
  - Pollakiuria [Recovering/Resolving]
  - Paraesthesia [Recovering/Resolving]
  - Asthenia [Recovering/Resolving]
  - Cystitis noninfective [Not Recovered/Not Resolved]
  - Musculoskeletal stiffness [Not Recovered/Not Resolved]

NARRATIVE: CASE EVENT DATE: 20150811
